FAERS Safety Report 24453646 (Version 2)
Quarter: 2024Q4

REPORT INFORMATION
  Report Type: Report from Study
  Country: US (occurrence: US)
  Receive Date: 20241017
  Receipt Date: 20241018
  Transmission Date: 20250115
  Serious: No
  Sender: ROCHE
  Company Number: US-ROCHE-3320779

PATIENT
  Age: 44 Year
  Sex: Female

DRUGS (7)
  1. RITUXAN [Suspect]
     Active Substance: RITUXIMAB
     Indication: Haematuria
     Dosage: STRENGTH: 10MG/ML
     Route: 065
  2. RITUXAN [Suspect]
     Active Substance: RITUXIMAB
     Indication: Proteinuria
  3. CELLCEPT [Suspect]
     Active Substance: MYCOPHENOLATE MOFETIL
     Indication: Anti-neutrophil cytoplasmic antibody positive vasculitis
     Route: 048
     Dates: start: 2023
  4. RITUXAN [Suspect]
     Active Substance: RITUXIMAB
     Indication: Anti-neutrophil cytoplasmic antibody positive vasculitis
     Route: 042
     Dates: start: 202303, end: 202303
  5. ACTEMRA [Suspect]
     Active Substance: TOCILIZUMAB
     Indication: Product used for unknown indication
     Dosage: STRENGTH: 162 MG/ML
     Route: 058
  6. PREDNISONE [Concomitant]
     Active Substance: PREDNISONE
     Indication: Anti-neutrophil cytoplasmic antibody positive vasculitis
     Route: 048
     Dates: start: 202303
  7. CYCLOPHOSPHAMIDE [Concomitant]
     Active Substance: CYCLOPHOSPHAMIDE
     Indication: Anti-neutrophil cytoplasmic antibody positive vasculitis
     Route: 042
     Dates: start: 202304, end: 2023

REACTIONS (5)
  - Off label use [Unknown]
  - Off label use [Unknown]
  - Pruritus [Recovered/Resolved]
  - Dyspnoea [Recovered/Resolved]
  - Throat tightness [Recovered/Resolved]

NARRATIVE: CASE EVENT DATE: 20230301
